FAERS Safety Report 7643029 (Version 34)
Quarter: 2014Q3

REPORT INFORMATION
  Report Type: Spontaneous
  Country: US (occurrence: US)
  Receive Date: 20101027
  Receipt Date: 20140922
  Transmission Date: 20150326
  Serious: Yes (Death, Hospitalization, Other)
  Sender: FDA-Public Use
  Company Number: PHEH2010US03863

PATIENT
  Age: 69 Year
  Sex: Male

DRUGS (47)
  1. LIPITOR [Concomitant]
     Active Substance: ATORVASTATIN CALCIUM
  2. ASPIRIN. [Concomitant]
     Active Substance: ASPIRIN
  3. LOPRESSOR [Concomitant]
     Active Substance: METOPROLOL TARTRATE
  4. K-DUR [Concomitant]
     Active Substance: POTASSIUM CHLORIDE
  5. LEUCOVORIN [Concomitant]
     Active Substance: LEUCOVORIN
  6. HYDRALAZINE [Concomitant]
     Active Substance: HYDRALAZINE HYDROCHLORIDE
     Dosage: 5 MG, Q20MIN
     Route: 042
  7. ASA [Concomitant]
     Active Substance: ASPIRIN
  8. LISINOPRIL. [Concomitant]
     Active Substance: LISINOPRIL
  9. NEULASTA [Concomitant]
     Active Substance: PEGFILGRASTIM
  10. CAMPTOSAR [Concomitant]
     Active Substance: IRINOTECAN HYDROCHLORIDE
  11. NYSTATIN. [Concomitant]
     Active Substance: NYSTATIN
  12. THALIDOMIDE [Concomitant]
     Active Substance: THALIDOMIDE
  13. FLOMAX [Concomitant]
     Active Substance: TAMSULOSIN HYDROCHLORIDE
     Dosage: 0.4 MG, QD
     Route: 048
  14. HEPARIN [Concomitant]
     Active Substance: HEPARIN SODIUM
     Dosage: 5000 U, BID
     Route: 058
  15. LASIX [Concomitant]
     Active Substance: FUROSEMIDE
  16. LUPRON [Concomitant]
     Active Substance: LEUPROLIDE ACETATE
  17. ZOFRAN [Concomitant]
     Active Substance: ONDANSETRON HYDROCHLORIDE
  18. ARANESP [Concomitant]
     Active Substance: DARBEPOETIN ALFA
  19. MEPERIDINE [Concomitant]
     Active Substance: MEPERIDINE
  20. FLAGYL [Concomitant]
     Active Substance: METRONIDAZOLE\METRONIDAZOLE HYDROCHLORIDE
     Dosage: 500 UKN, QID
     Route: 048
  21. CIPROFLOXACIN. [Concomitant]
     Active Substance: CIPROFLOXACIN
     Dosage: 500 UKN, BID
     Route: 048
  22. HYDROCHLOROTHIAZIDE. [Concomitant]
     Active Substance: HYDROCHLOROTHIAZIDE
  23. BACLOFEN. [Concomitant]
     Active Substance: BACLOFEN
  24. FLUOROURACIL. [Concomitant]
     Active Substance: FLUOROURACIL
  25. AMBIEN [Concomitant]
     Active Substance: ZOLPIDEM TARTRATE
  26. TYLENOL [Concomitant]
     Active Substance: ACETAMINOPHEN
  27. AUGMENTIN [Concomitant]
     Active Substance: AMOXICILLIN\CLAVULANATE POTASSIUM
     Dosage: 1 DF, BID
     Route: 048
  28. AVASTIN [Concomitant]
     Active Substance: BEVACIZUMAB
  29. ROXICET [Concomitant]
     Active Substance: ACETAMINOPHEN\OXYCODONE HYDROCHLORIDE
     Route: 048
  30. NITROGLYCERIN. [Concomitant]
     Active Substance: NITROGLYCERIN
  31. ZOMETA [Suspect]
     Active Substance: ZOLEDRONIC ACID
     Indication: PLASMA CELL MYELOMA
     Dosage: 4 MG, UNK
     Route: 042
     Dates: end: 200904
  32. AREDIA [Suspect]
     Active Substance: PAMIDRONATE DISODIUM
     Dosage: 90 MG, EVERY 4 WEEKS
     Route: 041
  33. TOPROL XL [Concomitant]
     Active Substance: METOPROLOL SUCCINATE
  34. MULTIVITAMIN [Concomitant]
     Active Substance: VITAMINS
  35. SENOKOT [Concomitant]
     Active Substance: SENNOSIDES
  36. FLUOXETINE HYDROCHLORIDE. [Concomitant]
     Active Substance: FLUOXETINE HYDROCHLORIDE
     Dosage: 20 MG, UNK
     Route: 048
  37. PROTONIX [Concomitant]
     Active Substance: PANTOPRAZOLE SODIUM
  38. ZOSYN [Concomitant]
     Active Substance: PIPERACILLIN SODIUM\TAZOBACTAM SODIUM
  39. NALTREXONE [Concomitant]
     Active Substance: NALTREXONE
  40. MAGNESIUM [Concomitant]
     Active Substance: MAGNESIUM
  41. CEFEPIME [Concomitant]
     Active Substance: CEFEPIME\CEFEPIME HYDROCHLORIDE
  42. LABETALOL [Concomitant]
     Active Substance: LABETALOL\LABETALOL HYDROCHLORIDE
     Dosage: 10 MG, Q5MIN
  43. UNASYN [Concomitant]
     Active Substance: AMPICILLIN SODIUM\SULBACTAM SODIUM
     Dosage: 3 G, Q6H
     Route: 042
  44. OXYCONTIN [Concomitant]
     Active Substance: OXYCODONE HYDROCHLORIDE
  45. DILAUDID [Concomitant]
     Active Substance: HYDROMORPHONE HYDROCHLORIDE
     Dosage: 2 MG, UNK
     Route: 048
  46. AMPICILLIN SODIUM. [Concomitant]
     Active Substance: AMPICILLIN SODIUM
     Dosage: 2 G, UNK
     Route: 042
  47. PLAVIX [Concomitant]
     Active Substance: CLOPIDOGREL BISULFATE
     Dosage: 75 MG, QD
     Route: 048

REACTIONS (127)
  - Death [Fatal]
  - Osteonecrosis of jaw [Unknown]
  - Tooth fracture [Unknown]
  - Spinal compression fracture [Unknown]
  - Pulmonary mass [Unknown]
  - Sciatica [Unknown]
  - Pulmonary embolism [Unknown]
  - Anaemia [Unknown]
  - Erectile dysfunction [Unknown]
  - Interstitial lung disease [Unknown]
  - Lymphopenia [Unknown]
  - Gingival ulceration [Not Recovered/Not Resolved]
  - Ischaemia [Unknown]
  - Chest pain [Unknown]
  - Atelectasis [Unknown]
  - Dyspnoea [Unknown]
  - Bundle branch block right [Unknown]
  - Obesity [Unknown]
  - Chronic obstructive pulmonary disease [Unknown]
  - Osteoarthritis [Unknown]
  - Chest discomfort [Unknown]
  - Vision blurred [Unknown]
  - Jaw disorder [Unknown]
  - Kyphosis [Unknown]
  - Intervertebral disc degeneration [Unknown]
  - Spondylolisthesis [Unknown]
  - Pain [Unknown]
  - Abscess oral [Unknown]
  - Gingival inflammation [Unknown]
  - Cardiomegaly [Unknown]
  - Prostate cancer [Unknown]
  - Angina unstable [Unknown]
  - Hyperlipidaemia [Unknown]
  - Tricuspid valve incompetence [Unknown]
  - Tachycardia [Unknown]
  - Frequent bowel movements [Unknown]
  - Ventricular extrasystoles [Unknown]
  - Ischaemic cardiomyopathy [Unknown]
  - Abdominal wall mass [Unknown]
  - Leukopenia [Unknown]
  - Oral discharge [Unknown]
  - Joint injury [Unknown]
  - Diverticulitis [Unknown]
  - Respiratory failure [Unknown]
  - Pneumonia [Unknown]
  - Mitral valve prolapse [Unknown]
  - Type 2 diabetes mellitus [Unknown]
  - Splenic calcification [Unknown]
  - Intra-abdominal haematoma [Unknown]
  - Metastases to lung [Unknown]
  - Enterococcal infection [Unknown]
  - Depression [Unknown]
  - Aortic arteriosclerosis [Unknown]
  - Vascular calcification [Unknown]
  - Aortic calcification [Unknown]
  - Renal failure [Unknown]
  - Rectal haemorrhage [Unknown]
  - Mass [Unknown]
  - Dental caries [Unknown]
  - Pleural effusion [Recovering/Resolving]
  - Bone cancer [Unknown]
  - Colon cancer [Unknown]
  - Atrial fibrillation [Unknown]
  - Gastrointestinal haemorrhage [Unknown]
  - Myocardial infarction [Unknown]
  - Second primary malignancy [Unknown]
  - Small intestinal obstruction [Unknown]
  - Lymphatic system neoplasm [Unknown]
  - Electrocardiogram QRS complex prolonged [Unknown]
  - Staphylococcal sepsis [Unknown]
  - Cardiac failure congestive [Unknown]
  - Pancytopenia [Unknown]
  - Fatigue [Unknown]
  - Febrile neutropenia [Unknown]
  - Pulpitis dental [Unknown]
  - Renal cyst [Unknown]
  - Hypertension [Unknown]
  - Coronary artery disease [Unknown]
  - Metastases to abdominal wall [Unknown]
  - Anisocytosis [Unknown]
  - Gout [Unknown]
  - Rectosigmoid cancer [Unknown]
  - Soft tissue disorder [Unknown]
  - Gram stain positive [Unknown]
  - Osteitis [Unknown]
  - Thyroid neoplasm [Unknown]
  - Sleep apnoea syndrome [Unknown]
  - Normochromic normocytic anaemia [Unknown]
  - Umbilical hernia [Unknown]
  - Spinal osteoarthritis [Unknown]
  - Vertebral foraminal stenosis [Unknown]
  - Neutropenia [Unknown]
  - Bone disorder [Unknown]
  - Primary sequestrum [Unknown]
  - Radicular cyst [Unknown]
  - Abdominal hernia [Unknown]
  - Large intestine polyp [Unknown]
  - Hypercalcaemia [Unknown]
  - Carotid bruit [Unknown]
  - Mitral valve incompetence [Unknown]
  - Malignant melanoma [Unknown]
  - Haematochezia [Unknown]
  - Lymphadenopathy [Unknown]
  - Arthralgia [Unknown]
  - Electrocardiogram ST segment depression [Unknown]
  - Spinal column stenosis [Unknown]
  - Splenic granuloma [Unknown]
  - Spinal cord compression [Unknown]
  - Spinal deformity [Unknown]
  - Toothache [Unknown]
  - Bone pain [Unknown]
  - Osteoporosis [Unknown]
  - Intervertebral disc protrusion [Unknown]
  - Osteomyelitis [Unknown]
  - Arteriosclerosis [Unknown]
  - Deep vein thrombosis [Unknown]
  - Haemorrhoids [Unknown]
  - Radiculopathy [Unknown]
  - Left ventricular hypertrophy [Unknown]
  - Exostosis [Unknown]
  - Actinomyces test positive [Unknown]
  - Thrombocytopenia [Unknown]
  - Gastric cancer [Unknown]
  - Clostridium difficile colitis [Unknown]
  - Impaired healing [Unknown]
  - Osteolysis [Unknown]
  - Hyperkalaemia [Unknown]

NARRATIVE: CASE EVENT DATE: 200905
